FAERS Safety Report 9271892 (Version 2)
Quarter: 2014Q1

REPORT INFORMATION
  Report Type: Spontaneous
  Country: US (occurrence: US)
  Receive Date: 20130506
  Receipt Date: 20140203
  Transmission Date: 20141002
  Serious: Yes (Hospitalization, Disabling)
  Sender: FDA-Public Use
  Company Number: US-ASTRAZENECA-2013SE27433

PATIENT
  Age: 709 Month
  Sex: Female
  Weight: 95.3 kg

DRUGS (21)
  1. NEXIUM [Suspect]
     Indication: GASTROOESOPHAGEAL REFLUX DISEASE
     Route: 048
  2. NEXIUM [Suspect]
     Indication: GASTROOESOPHAGEAL REFLUX DISEASE
     Route: 048
     Dates: start: 20100618
  3. OMEPRAZOLE [Suspect]
     Route: 048
  4. PREVACID [Suspect]
     Indication: GASTROOESOPHAGEAL REFLUX DISEASE
     Route: 065
  5. TUMS [Concomitant]
  6. ALKA-SELTZER [Concomitant]
  7. MILK OF MAGNESIA [Concomitant]
  8. PEPTO-BISMOL [Concomitant]
  9. ROLAIDS [Concomitant]
  10. CYPRAZOLAM [Concomitant]
  11. OXYCODONE [Concomitant]
  12. MORPHINE [Concomitant]
  13. MISOPROSTOL [Concomitant]
  14. NAPROXEN [Concomitant]
  15. BUPROFIN [Concomitant]
  16. VITAMIN D [Concomitant]
  17. WARFARIN [Concomitant]
  18. CALCIUM [Concomitant]
  19. FORTEO [Concomitant]
  20. MELOXICAM [Concomitant]
     Route: 048
     Dates: start: 20100618
  21. FUROSEMIDE [Concomitant]
     Route: 048
     Dates: start: 20100618

REACTIONS (10)
  - Back disorder [Unknown]
  - Pneumonia legionella [Unknown]
  - Osteoporosis [Unknown]
  - Bone disorder [Unknown]
  - Multiple fractures [Unknown]
  - Spinal fracture [Unknown]
  - Thoracic vertebral fracture [Unknown]
  - Spondylolisthesis [Unknown]
  - Intervertebral disc degeneration [Unknown]
  - Osteoarthritis [Unknown]
